FAERS Safety Report 9812726 (Version 1)
Quarter: 2014Q1

REPORT INFORMATION
  Report Type: Spontaneous
  Country: US (occurrence: US)
  Receive Date: 20140113
  Receipt Date: 20140113
  Transmission Date: 20141002
  Serious: Yes (Other)
  Sender: FDA-Public Use
  Company Number: 2013SP007783

PATIENT
  Sex: Female

DRUGS (6)
  1. VANCOMYCIN [Suspect]
     Indication: DIABETIC FOOT INFECTION
     Route: 040
     Dates: start: 201309, end: 20130914
  2. VANCOMYCIN [Suspect]
     Indication: SEPSIS
     Route: 040
     Dates: start: 201309, end: 20130914
  3. VANCOMYCIN [Suspect]
     Indication: DIABETIC FOOT INFECTION
     Route: 042
     Dates: start: 20130914, end: 20130924
  4. VANCOMYCIN [Suspect]
     Indication: SEPSIS
     Route: 042
     Dates: start: 20130914, end: 20130924
  5. VANCOMYCIN [Suspect]
     Indication: DIABETIC FOOT INFECTION
     Route: 042
     Dates: start: 20130924
  6. VANCOMYCIN [Suspect]
     Indication: SEPSIS
     Route: 042
     Dates: start: 20130924

REACTIONS (2)
  - Nephropathy toxic [Unknown]
  - Blood creatinine increased [Unknown]
